FAERS Safety Report 14617898 (Version 1)
Quarter: 2018Q1

REPORT INFORMATION
  Report Type: Spontaneous
  Country: US (occurrence: US)
  Receive Date: 20180308
  Receipt Date: 20180308
  Transmission Date: 20180509
  Serious: Yes (Disabling)
  Sender: FDA-Public Use
  Company Number: None

PATIENT
  Age: 41 Year
  Sex: Female
  Weight: 72 kg

DRUGS (4)
  1. HEPARIN [Suspect]
     Active Substance: HEPARIN SODIUM
  2. XARELTO [Concomitant]
     Active Substance: RIVAROXABAN
  3. COUMADIN [Suspect]
     Active Substance: WARFARIN SODIUM
  4. OXYCODONE [Concomitant]
     Active Substance: OXYCODONE

REACTIONS (5)
  - Arthritis [None]
  - Haematochezia [None]
  - Osteoporosis [None]
  - Arthralgia [None]
  - Movement disorder [None]

NARRATIVE: CASE EVENT DATE: 20151112
